FAERS Safety Report 18651365 (Version 7)
Quarter: 2021Q4

REPORT INFORMATION
  Report Type: Report from Study
  Country: US (occurrence: US)
  Receive Date: 20201222
  Receipt Date: 20211123
  Transmission Date: 20220303
  Serious: No
  Sender: FDA-Public Use
  Company Number: NVSC2020US332692

PATIENT
  Sex: Female

DRUGS (4)
  1. ENTRESTO [Suspect]
     Active Substance: SACUBITRIL\VALSARTAN
     Indication: Product used for unknown indication
     Dosage: (SECUBITRIL 24.3 MG AND VALSARTAN 25.7 MG),  BID
     Route: 048
     Dates: start: 20200512
  2. ENTRESTO [Suspect]
     Active Substance: SACUBITRIL\VALSARTAN
     Dosage: (SECUBITRIL 24.3 MG AND VALSARTAN 25.7 MG) 1 TAB IN MORNING, 1 TAB IN EVENING, BID
     Route: 048
     Dates: start: 20201205
  3. CARVEDILOL [Suspect]
     Active Substance: CARVEDILOL
     Indication: Product used for unknown indication
     Dosage: UNK
     Route: 065
     Dates: start: 20200512
  4. WELLBUTRIN [Suspect]
     Active Substance: BUPROPION HYDROCHLORIDE
     Indication: Product used for unknown indication
     Dosage: UNK
     Route: 065
     Dates: start: 20201012

REACTIONS (10)
  - Feeling abnormal [Unknown]
  - Rhinorrhoea [Unknown]
  - Vision blurred [Unknown]
  - Cough [Recovering/Resolving]
  - Blood pressure measurement [Unknown]
  - Blood disorder [Unknown]
  - Cardiac stress test [Unknown]
  - Fear [Unknown]
  - Movement disorder [Unknown]
  - Wrong technique in product usage process [Unknown]
